FAERS Safety Report 4973477-0 (Version None)
Quarter: 2006Q2

REPORT INFORMATION
  Report Type: 
  Country: None (occurrence: None)
  Receive Date: 20060414
  Receipt Date: 20060405
  Transmission Date: 20061013
  Serious: Yes (Hospitalization)
  Sender: FDA-Public Use
  Company Number: FR-SANOFI-SYNTHELABO-A02200600950

PATIENT
  Age: 80 Year
  Sex: Male

DRUGS (5)
  1. STILNOX [Suspect]
     Indication: DRUG USE FOR UNKNOWN INDICATION
     Route: 048
     Dates: start: 20051210, end: 20051230
  2. ISOPTIN [Concomitant]
     Indication: DRUG USE FOR UNKNOWN INDICATION
     Route: 048
  3. ZESTORETIC [Concomitant]
     Indication: DRUG USE FOR UNKNOWN INDICATION
     Dosage: LISINOPRIL : 20 MG+HYDROCHLORTHIAZIDE : 12.5 MG
     Route: 048
  4. PLAVIX [Concomitant]
     Indication: DRUG USE FOR UNKNOWN INDICATION
     Route: 048
  5. OXYGEN [Concomitant]
     Dosage: 1.5 L
     Route: 045

REACTIONS (2)
  - CONDITION AGGRAVATED [None]
  - RESPIRATORY FAILURE [None]
